FAERS Safety Report 13640920 (Version 1)
Quarter: 2017Q2

REPORT INFORMATION
  Report Type: Spontaneous
  Country: NL (occurrence: NL)
  Receive Date: 20170612
  Receipt Date: 20170612
  Transmission Date: 20170830
  Serious: Yes (Other)
  Sender: FDA-Public Use
  Company Number: NL-BRISTOL-MYERS SQUIBB COMPANY-BMS-2017-048676

PATIENT
  Sex: Male
  Weight: 80 kg

DRUGS (3)
  1. COLECALCIFEROL DRANK  50.000IE/ML [Concomitant]
     Indication: PRODUCT USED FOR UNKNOWN INDICATION
     Dosage: 1XPER 3 MAANDEN 1,5ML
     Route: 048
     Dates: start: 20150421
  2. LEVOCETIRIZINE TABLET FO 5MG [Concomitant]
     Indication: PRODUCT USED FOR UNKNOWN INDICATION
     Dosage: 1DD1
     Route: 048
     Dates: start: 20140422
  3. PRAVASTATIN SODIUM. [Suspect]
     Active Substance: PRAVASTATIN SODIUM
     Indication: HYPERCHOLESTEROLAEMIA
     Dosage: 20 MG, BID
     Route: 048
     Dates: start: 20160404

REACTIONS (1)
  - Muscle rupture [Unknown]
